FAERS Safety Report 6527872-9 (Version None)
Quarter: 2010Q1

REPORT INFORMATION
  Report Type: 
  Country: None (occurrence: None)
  Receive Date: 20100105
  Receipt Date: 20100105
  Transmission Date: 20100710
  Serious: Yes (Hospitalization)
  Sender: FDA-Public Use
  Company Number: None

PATIENT
  Age: 44 Year
  Sex: Male

DRUGS (1)
  1. LISINOPRIL [Suspect]
     Indication: HYPERTENSION
     Dosage: 10 MG EVERY DAY PO
     Route: 048
     Dates: start: 20070807, end: 20091024

REACTIONS (4)
  - ANGIOEDEMA [None]
  - DYSPNOEA [None]
  - PARAESTHESIA ORAL [None]
  - THROAT TIGHTNESS [None]
